FAERS Safety Report 7220953-6 (Version None)
Quarter: 2011Q1

REPORT INFORMATION
  Report Type: 
  Country: None (occurrence: None)
  Receive Date: 20110112
  Receipt Date: 20110107
  Transmission Date: 20110831
  Serious: No
  Sender: FDA-Public Use
  Company Number: A0829122A

PATIENT
  Age: 36 Year
  Sex: Female

DRUGS (1)
  1. SORIATANE [Suspect]
     Route: 048
     Dates: end: 20090101

REACTIONS (2)
  - NO ADVERSE EVENT [None]
  - TWIN PREGNANCY [None]
